FAERS Safety Report 6832733-1 (Version None)
Quarter: 2010Q3

REPORT INFORMATION
  Report Type: 
  Country: None (occurrence: None)
  Receive Date: 20100707
  Receipt Date: 20100621
  Transmission Date: 20110219
  Serious: Yes (Other)
  Sender: FDA-Public Use
  Company Number: IND1-DE-2010-0063

PATIENT

DRUGS (2)
  1. INDOCIN [Suspect]
     Indication: PRODUCT USED FOR UNKNOWN INDICATION
     Dosage: 25 MG/BID, PER ORAL
     Route: 048
  2. TEMOZOLOMIDE [Suspect]
     Indication: GLIOBLASTOMA
     Dosage: 150MG/M[2]/DAILY, PER ORAL
     Route: 048

REACTIONS (1)
  - HEPATITIS [None]
